FAERS Safety Report 17858776 (Version 2)
Quarter: 2020Q2

REPORT INFORMATION
  Report Type: Report from Study
  Country: None (occurrence: US)
  Receive Date: 20200604
  Receipt Date: 20200605
  Transmission Date: 20200714
  Serious: No
  Sender: FDA-Public Use
  Company Number: US-US WORLDMEDS, LLC-USW201912-002384

PATIENT
  Age: 71 Year
  Sex: Female
  Weight: 42.63 kg

DRUGS (21)
  1. APOKYN [Suspect]
     Active Substance: APOMORPHINE HYDROCHLORIDE
     Route: 058
     Dates: start: 20191031
  2. ROPINIROLE. [Concomitant]
     Active Substance: ROPINIROLE
  3. APOKYN [Suspect]
     Active Substance: APOMORPHINE HYDROCHLORIDE
     Dosage: MAINTENANCE PRESCRIPTION: UPTO 0.8ML; CURRENT DOSE: 0.2 TO 0.3 ML
     Route: 058
  4. CBD OIL [Concomitant]
     Active Substance: CANNABIDIOL\HERBALS
  5. PROLIA [Concomitant]
     Active Substance: DENOSUMAB
  6. PROBIOTIC [Concomitant]
     Active Substance: PROBIOTICS NOS
  7. APOKYN [Suspect]
     Active Substance: APOMORPHINE HYDROCHLORIDE
     Route: 058
     Dates: start: 20191025
  8. DOMPERIDONE [Concomitant]
     Active Substance: DOMPERIDONE
  9. ZOLPIDEM [Concomitant]
     Active Substance: ZOLPIDEM TARTRATE
  10. MIRALAX [Concomitant]
     Active Substance: POLYETHYLENE GLYCOL 3350
  11. MELATONIN [Concomitant]
     Active Substance: MELATONIN
     Dosage: UNKNOWN
  12. CARBIDOPA-LEVODOPA [Concomitant]
     Active Substance: CARBIDOPA\LEVODOPA
  13. VITAMIN D3 [Concomitant]
     Active Substance: CHOLECALCIFEROL
  14. APOKYN [Suspect]
     Active Substance: APOMORPHINE HYDROCHLORIDE
  15. INBRIJA [Concomitant]
     Active Substance: LEVODOPA
     Dosage: INHALE 2 CAPSULES ORALLY PRN BID
  16. CETRIZINE [Concomitant]
     Active Substance: CETIRIZINE HYDROCHLORIDE
  17. MULTIVITAMIN [Concomitant]
     Active Substance: VITAMINS
  18. APOKYN [Suspect]
     Active Substance: APOMORPHINE HYDROCHLORIDE
     Dates: start: 20191024
  19. VALERIAN [Concomitant]
     Active Substance: VALERIAN
  20. APOKYN [Suspect]
     Active Substance: APOMORPHINE HYDROCHLORIDE
     Indication: PARKINSON^S DISEASE
     Route: 058
     Dates: start: 20191024, end: 20191205
  21. LEVOTHRYROXINE [Concomitant]

REACTIONS (3)
  - Nausea [Recovered/Resolved]
  - Dizziness [Unknown]
  - Therapeutic product effect incomplete [Unknown]

NARRATIVE: CASE EVENT DATE: 20191205
